FAERS Safety Report 13046239 (Version 4)
Quarter: 2017Q1

REPORT INFORMATION
  Report Type: Spontaneous
  Country: US (occurrence: US)
  Receive Date: 20161220
  Receipt Date: 20170207
  Transmission Date: 20170509
  Serious: No
  Sender: FDA-Public Use
  Company Number: US-GLAXOSMITHKLINE-US2016GSK187852

PATIENT
  Age: 61 Year
  Sex: Female

DRUGS (1)
  1. TANZEUM [Suspect]
     Active Substance: ALBIGLUTIDE
     Indication: TYPE 2 DIABETES MELLITUS
     Dosage: 50 MG, WE
     Route: 042
     Dates: start: 20161117

REACTIONS (9)
  - Circumstance or information capable of leading to medication error [Unknown]
  - Weight increased [Unknown]
  - Malaise [Unknown]
  - Wrong technique in product usage process [Unknown]
  - Headache [Unknown]
  - Nausea [Unknown]
  - Product label issue [Unknown]
  - Circumstance or information capable of leading to device use error [Unknown]
  - Hunger [Unknown]

NARRATIVE: CASE EVENT DATE: 20161215
